FAERS Safety Report 23145411 (Version 1)
Quarter: 2023Q4

REPORT INFORMATION
  Report Type: Spontaneous
  Country: US (occurrence: US)
  Receive Date: 20231103
  Receipt Date: 20231103
  Transmission Date: 20240109
  Serious: Yes (Hospitalization, Other)
  Sender: FDA-Public Use
  Company Number: US-TEVA-2023-US-2942161

PATIENT
  Age: 22 Year

DRUGS (10)
  1. DULOXETINE [Suspect]
     Active Substance: DULOXETINE
     Indication: Major depression
     Dosage: 80 MILLIGRAM DAILY; 40MG TWICE A DAY
     Route: 065
     Dates: start: 20211229
  2. BUPROPION [Suspect]
     Active Substance: BUPROPION
     Indication: Major depression
     Dosage: 300 MILLIGRAM DAILY;
     Route: 065
     Dates: start: 20211229
  3. BUPROPION [Suspect]
     Active Substance: BUPROPION
     Dosage: 450 MILLIGRAM DAILY; THE PATIENT HAD BEEN ON THE INCREASED DOSE OF BUPROPION 450MG FOR 35 DAYS
     Route: 065
     Dates: start: 20220301
  4. GABAPENTIN [Suspect]
     Active Substance: GABAPENTIN
     Indication: Migraine
     Dosage: 300 MILLIGRAM DAILY; 100MG THREE TIMES A DAY
     Route: 065
     Dates: start: 20220112
  5. GABAPENTIN [Suspect]
     Active Substance: GABAPENTIN
     Dosage: 900 MILLIGRAM DAILY; 300MG THREE TIMES A DAY. THE DOSE OF GABAPENTIN WAS INCREASED FOR 54 DAYS
     Route: 065
     Dates: start: 20220210
  6. GABAPENTIN [Suspect]
     Active Substance: GABAPENTIN
     Dosage: GABAPENTIN TAPER WAS BEGUN PER PATIENT REQUEST SECONDARY TO LACK OF EFFICACY AND NEW ONSET OF TRE...
     Route: 065
  7. GABAPENTIN [Suspect]
     Active Substance: GABAPENTIN
     Dosage: 900 MILLIGRAM DAILY; 300MG THREE TIMES A DAY
     Route: 065
  8. AMANTADINE [Suspect]
     Active Substance: AMANTADINE
     Indication: Post-traumatic headache
     Dosage: 100MG TWICE A DAY
     Route: 065
     Dates: start: 20220405
  9. ONDANSETRON [Suspect]
     Active Substance: ONDANSETRON
     Indication: Nausea
     Dosage: 20 TABLETS
     Route: 065
  10. BOTULINUM TOXIN NOS [Concomitant]
     Active Substance: BOTULINUM TOXIN NOS
     Indication: Post-traumatic headache
     Route: 065

REACTIONS (2)
  - Serotonin syndrome [Recovered/Resolved]
  - Drug ineffective [Unknown]

NARRATIVE: CASE EVENT DATE: 20220424
